FAERS Safety Report 17225189 (Version 1)
Quarter: 2019Q4

REPORT INFORMATION
  Report Type: Spontaneous
  Country: US (occurrence: US)
  Receive Date: 20191209
  Receipt Date: 20191209
  Transmission Date: 20200122
  Serious: Yes (Hospitalization)
  Sender: FDA-Public Use
  Company Number: None

PATIENT
  Age: 57 Year
  Sex: Male

DRUGS (16)
  1. AMBIEN [Concomitant]
     Active Substance: ZOLPIDEM TARTRATE
  2. FARXIGA [Concomitant]
     Active Substance: DAPAGLIFLOZIN PROPANEDIOL
  3. NORCO [Concomitant]
     Active Substance: ACETAMINOPHEN\HYDROCODONE BITARTRATE
  4. TIZANIDINE. [Concomitant]
     Active Substance: TIZANIDINE
  5. REPATHA [Suspect]
     Active Substance: EVOLOCUMAB
     Indication: DERMATITIS CONTACT
     Dosage: ?          OTHER DOSE:1 PEN;?
     Route: 058
     Dates: start: 20180823
  6. AMLODIPINE [Concomitant]
     Active Substance: AMLODIPINE BESYLATE
  7. PANTOPRAZOLE [Concomitant]
     Active Substance: PANTOPRAZOLE
  8. SAVELLA [Concomitant]
     Active Substance: MILNACIPRAN HYDROCHLORIDE
  9. BYSTOLIC [Concomitant]
     Active Substance: NEBIVOLOL HYDROCHLORIDE
  10. PROBN/COLCH [Concomitant]
  11. SOMA [Concomitant]
     Active Substance: CARISOPRODOL
  12. ASPIRIN. [Concomitant]
     Active Substance: ASPIRIN
  13. CHOLESTYRAM [Concomitant]
     Active Substance: CHOLESTYRAMINE
  14. ABILIFY [Concomitant]
     Active Substance: ARIPIPRAZOLE
  15. NITROGLYCERN [Concomitant]
  16. TOPIRAMATE. [Concomitant]
     Active Substance: TOPIRAMATE

REACTIONS (1)
  - Appendicitis perforated [None]

NARRATIVE: CASE EVENT DATE: 201911
